FAERS Safety Report 8792791 (Version 2)
Quarter: 2012Q4

REPORT INFORMATION
  Report Type: 
  Country: GB (occurrence: GB)
  Receive Date: 20120918
  Receipt Date: 20121016
  Transmission Date: 20130627
  Serious: Yes (Other)
  Sender: FDA-Public Use
  Company Number: GB-GLAXOSMITHKLINE-B0829754A

PATIENT
  Age: 7 Year
  Sex: Male
  Weight: 17.4 kg

DRUGS (6)
  1. CEFUROXIME [Suspect]
     Indication: PRIMARY CILIARY DYSKINESIA
     Route: 042
     Dates: start: 20120821, end: 20120827
  2. AUGMENTIN-DUO [Concomitant]
     Indication: PRIMARY CILIARY DYSKINESIA
     Dosage: 20ML Per day
     Route: 048
     Dates: start: 20120822, end: 20120827
  3. MONTELUKAST [Concomitant]
     Indication: PRIMARY CILIARY DYSKINESIA
     Dosage: 5MG Per day
     Route: 048
  4. PULMOZYME [Concomitant]
     Indication: PRIMARY CILIARY DYSKINESIA
     Dosage: 2.5MG Per day
     Route: 055
  5. SERETIDE [Concomitant]
     Indication: PRIMARY CILIARY DYSKINESIA
     Dosage: 4IUAX Per day
     Route: 055
  6. AVAMYS [Concomitant]
     Indication: PRIMARY CILIARY DYSKINESIA
     Dosage: 1IUAX Per day
     Route: 045

REACTIONS (6)
  - Aspartate aminotransferase increased [Recovering/Resolving]
  - Abdominal pain upper [Recovering/Resolving]
  - Abdominal pain [Recovering/Resolving]
  - Pyrexia [Recovering/Resolving]
  - Nausea [Recovering/Resolving]
  - C-reactive protein increased [Recovering/Resolving]
